FAERS Safety Report 5467691-8 (Version None)
Quarter: 2007Q3

REPORT INFORMATION
  Report Type: 
  Country: None (occurrence: None)
  Receive Date: 20070925
  Receipt Date: 20070914
  Transmission Date: 20080115
  Serious: Yes (Other)
  Sender: FDA-Public Use
  Company Number: US-ELI_LILLY_AND_COMPANY-US200709003001

PATIENT
  Sex: Male

DRUGS (1)
  1. HUMATROPE [Suspect]
     Indication: PITUITARY TUMOUR REMOVAL
     Dosage: 0.23 MG, DAILY (1/D)
     Route: 065
     Dates: start: 19990101

REACTIONS (2)
  - ABDOMINAL HERNIA [None]
  - AORTIC ANEURYSM [None]
